FAERS Safety Report 5912444-7 (Version None)
Quarter: 2008Q4

REPORT INFORMATION
  Report Type: 
  Country: None (occurrence: None)
  Receive Date: 20081008
  Receipt Date: 20080926
  Transmission Date: 20090506
  Serious: Yes (Death, Life-Threatening, Hospitalization, Other)
  Sender: FDA-Public Use
  Company Number: DE-ELI_LILLY_AND_COMPANY-DE200809006188

PATIENT
  Sex: Male

DRUGS (2)
  1. GEMZAR [Suspect]
     Indication: PANCREATIC CARCINOMA
     Dosage: 1000 MG/M2, UNKNOWN
     Route: 042
     Dates: start: 20060810
  2. CAPECITABINE [Concomitant]
     Indication: PANCREATIC CARCINOMA
     Dosage: UNK, UNKNOWN
     Route: 065
     Dates: start: 20060810

REACTIONS (3)
  - CONVULSION [None]
  - HAEMOLYTIC URAEMIC SYNDROME [None]
  - NEOPLASM PROGRESSION [None]
